FAERS Safety Report 6493215-2 (Version None)
Quarter: 2009Q4

REPORT INFORMATION
  Report Type: 
  Country: None (occurrence: None)
  Receive Date: 20091214
  Receipt Date: 20091124
  Transmission Date: 20100525
  Serious: Yes (Hospitalization)
  Sender: FDA-Public Use
  Company Number: DE-BAYER-DE-2006-003399

PATIENT
  Age: 31 Year
  Sex: Female

DRUGS (2)
  1. MIRANOVA (21+7) (SH D 593 B) [Suspect]
     Indication: ORAL CONTRACEPTION
     Dosage: 2 TAB(S), 1X/DAY [DAILY DOSE: 2 TAB(S)] [TOTAL DOSE: 390 TAB(S)]
     Route: 048
     Dates: start: 20050331, end: 20051012
  2. YASMIN [Suspect]
     Indication: ORAL CONTRACEPTION
     Dosage: 1 TAB(S), 1X/DAY [DAILY DOSE: 1 TAB(S)] [TOTAL DOSE: 78 TAB(S)]
     Route: 048
     Dates: start: 20051109, end: 20060126

REACTIONS (1)
  - BREAST CANCER [None]
